FAERS Safety Report 7586368-6 (Version None)
Quarter: 2011Q3

REPORT INFORMATION
  Report Type: 
  Country: None (occurrence: None)
  Receive Date: 20110701
  Receipt Date: 20110609
  Transmission Date: 20111222
  Serious: Yes (Death, Hospitalization)
  Sender: FDA-Public Use
  Company Number: A0806078A

PATIENT
  Age: 74 Year
  Sex: Male
  Weight: 101.4 kg

DRUGS (13)
  1. AVANDAMET [Suspect]
     Indication: DIABETES MELLITUS
     Route: 048
  2. CALCITRIOL [Concomitant]
  3. GLUCOTROL XL [Concomitant]
  4. DARVOCET [Concomitant]
  5. QUININE SULFATE [Concomitant]
  6. LIPITOR [Concomitant]
  7. ZOCOR [Concomitant]
  8. XANAX [Concomitant]
  9. AVANDIA [Suspect]
     Indication: DIABETES MELLITUS
     Dosage: 8MG PER DAY
     Route: 048
     Dates: start: 20060101, end: 20071231
  10. LISINOPRIL [Concomitant]
  11. PREVACID [Concomitant]
  12. GLUCOPHAGE [Concomitant]
  13. DIGOXIN [Concomitant]

REACTIONS (4)
  - ACUTE MYOCARDIAL INFARCTION [None]
  - CARDIAC FAILURE CONGESTIVE [None]
  - LIVER INJURY [None]
  - RESPIRATORY FAILURE [None]
